FAERS Safety Report 10084778 (Version 1)
Quarter: 2014Q2

REPORT INFORMATION
  Report Type: Report from Study
  Country: IT (occurrence: IT)
  Receive Date: 20140417
  Receipt Date: 20140417
  Transmission Date: 20141212
  Serious: Yes (Hospitalization, Disabling)
  Sender: FDA-Public Use
  Company Number: IT-AMGEN-ITACT2014026534

PATIENT
  Age: 41 Year
  Sex: Male

DRUGS (7)
  1. PEGFILGRASTIM [Suspect]
     Indication: HAEMATOPOIETIC STEM CELL MOBILISATION
     Dosage: 6 MG, UNK
     Route: 058
     Dates: start: 20120108
  2. ETOPOSIDE [Concomitant]
     Dosage: 188 MG, QDX3
     Dates: start: 20120105, end: 20120107
  3. CISPLATIN [Concomitant]
     Dosage: 150 MG, QD
     Dates: start: 20120105, end: 20120107
  4. ARA-C [Concomitant]
     Dosage: 352 MG, QDX2DAYS
     Dates: start: 20120105, end: 20120107
  5. METHYLPREDNISOLONE [Concomitant]
     Dosage: UNK
     Route: 042
     Dates: start: 20120105, end: 20120107
  6. CYTARABINE [Concomitant]
     Dosage: UNK
     Route: 042
     Dates: start: 20120105, end: 20120107
  7. LEVOFLOXACIN [Concomitant]
     Dosage: 500 MG, UNK
     Route: 048
     Dates: start: 20120107

REACTIONS (3)
  - Chest pain [Recovered/Resolved]
  - Bronchospasm [Recovered/Resolved]
  - Rash [Recovered/Resolved]
